FAERS Safety Report 17580880 (Version 1)
Quarter: 2020Q1

REPORT INFORMATION
  Report Type: Report from Study
  Country: None (occurrence: US)
  Receive Date: 20200325
  Receipt Date: 20200325
  Transmission Date: 20200409
  Serious: Yes (Hospitalization, Other)
  Sender: FDA-Public Use
  Company Number: US-ABBVIE-20K-163-3335325-00

PATIENT
  Age: 65 Year
  Sex: Male
  Weight: 74 kg

DRUGS (6)
  1. DUOPA [Suspect]
     Active Substance: CARBIDOPA\LEVODOPA
     Indication: PRODUCT USED FOR UNKNOWN INDICATION
     Route: 050
     Dates: start: 20200128
  2. RYTARY [Concomitant]
     Active Substance: CARBIDOPA\LEVODOPA
     Indication: PRODUCT USED FOR UNKNOWN INDICATION
     Dosage: 48.75-195MG
     Route: 050
  3. CELEXA [Concomitant]
     Active Substance: CITALOPRAM HYDROBROMIDE
     Indication: PRODUCT USED FOR UNKNOWN INDICATION
     Route: 050
  4. ARICEPT [Concomitant]
     Active Substance: DONEPEZIL HYDROCHLORIDE
     Indication: PRODUCT USED FOR UNKNOWN INDICATION
     Route: 050
  5. PRAVASTATIN. [Concomitant]
     Active Substance: PRAVASTATIN
     Indication: PRODUCT USED FOR UNKNOWN INDICATION
     Route: 050
  6. NUPLAZID [Concomitant]
     Active Substance: PIMAVANSERIN TARTRATE
     Indication: PRODUCT USED FOR UNKNOWN INDICATION
     Route: 050

REACTIONS (5)
  - Pulmonary oedema [Recovered/Resolved]
  - Myocardial infarction [Recovered/Resolved]
  - Insomnia [Recovered/Resolved]
  - Cardiomyopathy [Not Recovered/Not Resolved]
  - Blood potassium decreased [Recovered/Resolved]

NARRATIVE: CASE EVENT DATE: 2020
